FAERS Safety Report 10071931 (Version 1)
Quarter: 2014Q2

REPORT INFORMATION
  Report Type: Spontaneous
  Country: FR (occurrence: FR)
  Receive Date: 20140411
  Receipt Date: 20140411
  Transmission Date: 20141212
  Serious: Yes (Life-Threatening, Hospitalization)
  Sender: FDA-Public Use
  Company Number: FR-ROCHE-1376610

PATIENT
  Age: 73 Year
  Sex: Male

DRUGS (29)
  1. MABTHERA [Suspect]
     Indication: CHRONIC LYMPHOCYTIC LEUKAEMIA
     Dosage: CYCLE 1
     Route: 042
     Dates: start: 20130624
  2. MABTHERA [Suspect]
     Dosage: CYCLE 2
     Route: 042
     Dates: start: 20130724
  3. MABTHERA [Suspect]
     Dosage: CYCLE 3
     Route: 042
     Dates: start: 20130821
  4. MABTHERA [Suspect]
     Dosage: CYCLE 4. 800 MG
     Route: 042
     Dates: start: 20130918
  5. MABTHERA [Suspect]
     Dosage: CYCLE 5
     Route: 042
     Dates: start: 20131016
  6. MABTHERA [Suspect]
     Dosage: CYCLE 6
     Route: 042
     Dates: start: 20131113, end: 20131113
  7. FLUDARABINE PHOSPHATE [Suspect]
     Indication: CHRONIC LYMPHOCYTIC LEUKAEMIA
     Dosage: CYCLE 1
     Route: 048
     Dates: start: 20130625
  8. FLUDARABINE PHOSPHATE [Suspect]
     Dosage: CYCLE 2. 50 MG FROM D2 TO D4
     Route: 048
     Dates: start: 20130724
  9. FLUDARABINE PHOSPHATE [Suspect]
     Dosage: CYCLE 3. FROM D2 TO D4.
     Route: 048
  10. FLUDARABINE PHOSPHATE [Suspect]
     Dosage: CYCLE 4. FROM D2 TO D4.
     Route: 048
     Dates: start: 20130918
  11. FLUDARABINE PHOSPHATE [Suspect]
     Dosage: CYCLE 5. FROM D2 TO D4.
     Route: 048
     Dates: start: 20131016
  12. FLUDARABINE PHOSPHATE [Suspect]
     Dosage: CYCLE 6. FROM D2 TO D4.
     Route: 048
     Dates: start: 20131113, end: 20131116
  13. ENDOXAN [Suspect]
     Indication: CHRONIC LYMPHOCYTIC LEUKAEMIA
     Dosage: CYCLE 1.
     Route: 048
     Dates: start: 20130625
  14. ENDOXAN [Suspect]
     Dosage: CYCLE 2. 250 MG FROM D2 TO D4
     Route: 048
     Dates: start: 20130724
  15. ENDOXAN [Suspect]
     Dosage: CYCLE 3. FROM D2 TO D4.
     Route: 048
  16. ENDOXAN [Suspect]
     Dosage: CYCLE 4. 250 MG FROM D2 TO D4.
     Route: 048
     Dates: start: 20130918
  17. ENDOXAN [Suspect]
     Dosage: CYCLE 5. FROM D2 TO D4.
     Route: 048
     Dates: start: 20131016
  18. ENDOXAN [Suspect]
     Dosage: CYCLE 6. FROM D2 TO D4.
     Route: 048
     Dates: start: 20131113, end: 20131116
  19. BACTRIM [Concomitant]
     Dosage: 800/160
     Route: 065
  20. PREDNISONE [Concomitant]
     Route: 065
     Dates: start: 20130529
  21. ZELITREX [Concomitant]
     Route: 065
  22. NEULASTA [Concomitant]
     Dosage: DAY 6 CYCLE 2, CYCLE 5 AND CYCLE 6.
     Route: 065
  23. ALLOPURINOL [Concomitant]
     Route: 065
  24. CITALOPRAM [Concomitant]
     Route: 065
  25. TAMSULOSINE [Concomitant]
     Route: 065
  26. FLAGYL [Concomitant]
     Route: 065
  27. AMIKACINE [Concomitant]
     Route: 065
  28. DEBRIDAT [Concomitant]
     Route: 065
  29. FORLAX [Concomitant]
     Route: 048

REACTIONS (1)
  - Progressive multifocal leukoencephalopathy [Not Recovered/Not Resolved]
